FAERS Safety Report 5776977-9 (Version None)
Quarter: 2008Q2

REPORT INFORMATION
  Report Type: 
  Country: None (occurrence: None)
  Receive Date: 20080618
  Receipt Date: 20080612
  Transmission Date: 20081010
  Serious: Yes (Death)
  Sender: FDA-Public Use
  Company Number: FR-JNJFOC-20080407740

PATIENT
  Sex: Female
  Weight: 140 kg

DRUGS (6)
  1. RISPERDAL [Suspect]
     Indication: DELIRIUM
     Dosage: 1.5 MG IN THE MORNING AND 0.5 MG IN THE EVENING
     Route: 048
  2. FLECAINIDE ACETATE [Concomitant]
     Route: 048
  3. ASPEGIC 1000 [Concomitant]
     Route: 048
  4. VEINAMITOL [Concomitant]
     Route: 048
  5. IMOVANE [Concomitant]
     Route: 048
  6. LEXOMIL [Concomitant]
     Route: 048

REACTIONS (3)
  - ALTERED STATE OF CONSCIOUSNESS [None]
  - CARDIO-RESPIRATORY ARREST [None]
  - UNEVALUABLE EVENT [None]
